FAERS Safety Report 19117053 (Version 1)
Quarter: 2021Q2

REPORT INFORMATION
  Report Type: Report from Study
  Country: US (occurrence: US)
  Receive Date: 20210409
  Receipt Date: 20210409
  Transmission Date: 20210717
  Serious: No
  Sender: FDA-Public Use
  Company Number: US-AGIOS-2104US02650

PATIENT

DRUGS (1)
  1. TIBSOVO [Suspect]
     Active Substance: IVOSIDENIB
     Indication: BRAIN NEOPLASM MALIGNANT
     Dosage: 250 MILLIGRAM, 2 TABLET (500 MG), QD
     Route: 048
     Dates: start: 20201216

REACTIONS (4)
  - Nausea [Unknown]
  - Off label use [Unknown]
  - Cognitive disorder [Unknown]
  - Depressed mood [Unknown]

NARRATIVE: CASE EVENT DATE: 20201216
